FAERS Safety Report 9521397 (Version 1)
Quarter: 2013Q1

REPORT INFORMATION
  Report Type: Spontaneous
  Country: US (occurrence: None)
  Receive Date: 20130305
  Receipt Date: 20130305
  Transmission Date: 20140127
  Serious: Yes (Other)
  Sender: FDA-Public Use
  Company Number: 163-21880-12073176

PATIENT
  Age: 52 Year
  Sex: Female

DRUGS (4)
  1. REVLIMID (LENALIDOMIDE) (CAPSULES) [Suspect]
     Indication: PLASMA CELL MYELOMA
     Dosage: 25 MG, 21 IN 21 D, PO?7/25/2012 - ON HOLD
     Route: 048
     Dates: start: 20120725
  2. VALCYCLOVIR (VALACICLOVIR) [Concomitant]
  3. ZOMETA (ZOLEDRONIC ACID) [Concomitant]
  4. VELCADE (BORTEZOMIB) [Concomitant]

REACTIONS (2)
  - Rash [None]
  - Blister [None]
